FAERS Safety Report 13381953 (Version 1)
Quarter: 2017Q1

REPORT INFORMATION
  Report Type: Spontaneous
  Country: AU (occurrence: AU)
  Receive Date: 20170329
  Receipt Date: 20170329
  Transmission Date: 20170429
  Serious: Yes (Other)
  Sender: FDA-Public Use
  Company Number: PHHY2017AU041115

PATIENT
  Sex: Male

DRUGS (2)
  1. PAZOPANIB [Suspect]
     Active Substance: PAZOPANIB
     Indication: METASTASIS
     Dosage: UNK
     Route: 048
     Dates: end: 2015
  2. PAZOPANIB [Suspect]
     Active Substance: PAZOPANIB
     Indication: CHORDOMA

REACTIONS (7)
  - Product use issue [Unknown]
  - Chordoma [Unknown]
  - Spinal cord disorder [Unknown]
  - Metastases to lung [Unknown]
  - Malignant neoplasm progression [Unknown]
  - Dyspnoea [Unknown]
  - Drug intolerance [Unknown]

NARRATIVE: CASE EVENT DATE: 2015
